FAERS Safety Report 11424433 (Version 1)
Quarter: 2015Q3

REPORT INFORMATION
  Report Type: Spontaneous
  Country: US (occurrence: US)
  Receive Date: 20150827
  Receipt Date: 20150827
  Transmission Date: 20151125
  Serious: No
  Sender: FDA-Public Use
  Company Number: US-SA-2014SA155125

PATIENT
  Age: 86 Year
  Sex: Female

DRUGS (15)
  1. BACTRIM [Suspect]
     Active Substance: SULFAMETHOXAZOLE\TRIMETHOPRIM
     Route: 065
  2. SPIRONOLACTONE. [Concomitant]
     Active Substance: SPIRONOLACTONE
  3. PROCARDIA [Suspect]
     Active Substance: NIFEDIPINE
     Route: 065
  4. ZESTRIL [Suspect]
     Active Substance: LISINOPRIL
     Route: 065
  5. CLONIDINE. [Suspect]
     Active Substance: CLONIDINE
     Route: 065
  6. TRACLEER [Suspect]
     Active Substance: BOSENTAN
     Route: 065
  7. SIMVASTATIN. [Concomitant]
     Active Substance: SIMVASTATIN
  8. MULTAQ [Suspect]
     Active Substance: DRONEDARONE
     Route: 065
  9. NORVASC [Suspect]
     Active Substance: AMLODIPINE BESYLATE
     Route: 065
  10. LEVOTHYROXINE. [Concomitant]
     Active Substance: LEVOTHYROXINE
  11. CARVEDILOL. [Concomitant]
     Active Substance: CARVEDILOL
  12. TORSEMIDE. [Concomitant]
     Active Substance: TORSEMIDE
  13. AMIODARONE HYDROCHLORIDE. [Suspect]
     Active Substance: AMIODARONE HYDROCHLORIDE
     Route: 065
  14. REVATIO [Concomitant]
     Active Substance: SILDENAFIL CITRATE
  15. WARFARIN [Concomitant]
     Active Substance: WARFARIN

REACTIONS (1)
  - Drug hypersensitivity [Unknown]
